FAERS Safety Report 11362102 (Version 1)
Quarter: 2015Q3

REPORT INFORMATION
  Report Type: Spontaneous
  Country: CA (occurrence: CA)
  Receive Date: 20150810
  Receipt Date: 20150810
  Transmission Date: 20151125
  Serious: Yes (Death)
  Sender: FDA-Public Use
  Company Number: CA-BAUSCH-BL-2015-018526

PATIENT
  Age: 72 Year
  Sex: Female

DRUGS (1)
  1. METHYLNALTREXONE [Suspect]
     Active Substance: METHYLNALTREXONE
     Indication: PRURITUS
     Route: 058

REACTIONS (2)
  - Death [Fatal]
  - Off label use [Unknown]
